FAERS Safety Report 5291746-4 (Version None)
Quarter: 2007Q2

REPORT INFORMATION
  Report Type: 
  Country: None (occurrence: None)
  Receive Date: 20070410
  Receipt Date: 20070329
  Transmission Date: 20071010
  Serious: Yes (Other)
  Sender: FDA-Public Use
  Company Number: US-BAYER-200710771BWH

PATIENT
  Age: 57 Year
  Sex: Female

DRUGS (8)
  1. NEXAVAR [Suspect]
     Indication: MALIGNANT MELANOMA
     Dosage: TOTAL DAILY DOSE: 800 MG  UNIT DOSE: 200 MG
     Route: 048
     Dates: start: 20061211, end: 20061216
  2. NEXAVAR [Suspect]
     Dosage: TOTAL DAILY DOSE: 400 MG  UNIT DOSE: 200 MG
     Route: 048
     Dates: start: 20061226, end: 20070308
  3. NEXAVAR [Suspect]
     Dosage: TOTAL DAILY DOSE: 400 MG  UNIT DOSE: 200 MG
     Route: 048
     Dates: start: 20070321
  4. TEMODAR [Suspect]
     Dosage: TOTAL DAILY DOSE: 220 MG
     Route: 048
     Dates: start: 20070321, end: 20070325
  5. TEMODAR [Suspect]
     Dosage: TOTAL DAILY DOSE: 220 MG
     Route: 048
     Dates: start: 20070216, end: 20070220
  6. TEMODAR [Suspect]
     Dosage: TOTAL DAILY DOSE: 220 MG
     Route: 048
     Dates: start: 20070114, end: 20070118
  7. TEMODAR [Suspect]
     Dosage: TOTAL DAILY DOSE: 220 MG
     Route: 048
     Dates: start: 20061211, end: 20061215
  8. FOSAMAX [Concomitant]

REACTIONS (9)
  - DRY SKIN [None]
  - EYE SWELLING [None]
  - HAIR TEXTURE ABNORMAL [None]
  - HYPOTRICHOSIS [None]
  - RASH [None]
  - SKIN EXFOLIATION [None]
  - SQUAMOUS CELL CARCINOMA [None]
  - SWELLING [None]
  - SWELLING FACE [None]
